FAERS Safety Report 6297993-7 (Version None)
Quarter: 2009Q3

REPORT INFORMATION
  Report Type: 
  Country: None (occurrence: None)
  Receive Date: 20090805
  Receipt Date: 20090728
  Transmission Date: 20100115
  Serious: Yes (Other)
  Sender: FDA-Public Use
  Company Number: B0586696A

PATIENT
  Sex: Male

DRUGS (3)
  1. REQUIP [Suspect]
     Indication: PARKINSONISM
     Route: 065
  2. PERGOLIDE [Suspect]
     Indication: PARKINSONISM
     Route: 065
  3. SIFROL [Suspect]
     Indication: PARKINSONISM
     Route: 065

REACTIONS (7)
  - DEPRESSED MOOD [None]
  - DEPRESSION [None]
  - FOOD CRAVING [None]
  - GENERAL PHYSICAL HEALTH DETERIORATION [None]
  - PATHOLOGICAL GAMBLING [None]
  - SOCIAL AVOIDANT BEHAVIOUR [None]
  - SUICIDAL IDEATION [None]
